FAERS Safety Report 9363444 (Version 1)
Quarter: 2013Q2

REPORT INFORMATION
  Report Type: Spontaneous
  Country: GB (occurrence: None)
  Receive Date: 20130618
  Receipt Date: 20130618
  Transmission Date: 20140414
  Serious: Yes (Hospitalization, Other)
  Sender: FDA-Public Use
  Company Number: VAL_02557_2013

PATIENT
  Age: 11 Year
  Sex: Male

DRUGS (2)
  1. CARBAMAZEPINE (CARBAMAZEPINE) [Suspect]
     Indication: IDIOPATHIC GENERALISED EPILEPSY
     Dosage: (13 DF 1X[74 MG/KG, 2.6 G, NOT THE PRESCRIBED DOSE])
  2. CARBAMAZEPINE (CARBAMAZEPINE) [Suspect]
     Indication: OFF LABEL USE
     Dosage: (13 DF 1X[74 MG/KG, 2.6 G, NOT THE PRESCRIBED DOSE])

REACTIONS (12)
  - Hypouricaemia [None]
  - Coma [None]
  - Confusional state [None]
  - Agitation [None]
  - Aggression [None]
  - Overdose [None]
  - Dizziness [None]
  - Psychotic disorder [None]
  - Ataxia [None]
  - Hypotonia [None]
  - Tremor [None]
  - Hyporeflexia [None]
